FAERS Safety Report 22319857 (Version 3)
Quarter: 2023Q4

REPORT INFORMATION
  Report Type: Spontaneous
  Country: JP (occurrence: JP)
  Receive Date: 20230515
  Receipt Date: 20231009
  Transmission Date: 20240110
  Serious: Yes (Life-Threatening, Other)
  Sender: FDA-Public Use
  Company Number: JP-BEH-2023158576

PATIENT
  Age: 63 Year
  Sex: Female
  Weight: 54.8 kg

DRUGS (5)
  1. ALBUMINAR-5 [Suspect]
     Active Substance: ALBUMIN HUMAN
     Dosage: UNK
     Route: 065
     Dates: start: 20230509
  2. REMIFENTANIL [Concomitant]
     Active Substance: REMIFENTANIL
     Indication: Induction of anaesthesia
     Dosage: UNK
     Dates: start: 20230509
  3. PROPOFOL [Concomitant]
     Active Substance: PROPOFOL
     Indication: Induction of anaesthesia
     Dosage: UNK
     Dates: start: 20230509
  4. ROCURONIUM [Concomitant]
     Active Substance: ROCURONIUM BROMIDE
     Indication: Induction of anaesthesia
     Dosage: UNK
     Dates: start: 20230509
  5. DESFLURANE [Concomitant]
     Active Substance: DESFLURANE
     Indication: Maintenance of anaesthesia
     Dosage: UNK
     Dates: start: 20230509

REACTIONS (6)
  - Anaphylactic shock [Recovering/Resolving]
  - Cardiovascular insufficiency [Recovering/Resolving]
  - Respiratory disorder [Recovering/Resolving]
  - Flushing [Recovering/Resolving]
  - Ventricular fibrillation [Unknown]
  - Skin test positive [Unknown]

NARRATIVE: CASE EVENT DATE: 20230509
